FAERS Safety Report 8968066 (Version 3)
Quarter: 2013Q1

REPORT INFORMATION
  Report Type: Spontaneous
  Country: US (occurrence: US)
  Receive Date: 20121217
  Receipt Date: 20130301
  Transmission Date: 20140127
  Serious: Yes (Other)
  Sender: FDA-Public Use
  Company Number: US-PFIZER INC-2012313328

PATIENT
  Age: 68 Year
  Sex: Male

DRUGS (2)
  1. AZULFIDINE [Suspect]
     Indication: RHEUMATOID ARTHRITIS
     Dosage: 2 TABS 2X/DAY
     Route: 048
     Dates: start: 20081010, end: 20081212
  2. DARVOCET [Suspect]
     Indication: PAIN
     Dosage: 1 TABLET, 4X/DAY
     Route: 048
     Dates: start: 20070611, end: 20081212

REACTIONS (3)
  - Hypersensitivity [Unknown]
  - Headache [Recovered/Resolved]
  - Drug ineffective [Recovered/Resolved]
